FAERS Safety Report 5955871-4 (Version None)
Quarter: 2008Q4

REPORT INFORMATION
  Report Type: 
  Country: None (occurrence: None)
  Receive Date: 20081112
  Receipt Date: 20081028
  Transmission Date: 20090506
  Serious: Yes (Other)
  Sender: FDA-Public Use
  Company Number: GXKR2008US10619

PATIENT
  Age: 71 Year
  Sex: Male

DRUGS (3)
  1. METOCLOPRAMIDE [Suspect]
     Dosage: 10 MG, TID
  2. LEVODOPA-CARBIDOPA (CARBIDOPA, LEVODOPA) [Concomitant]
  3. TRIHEXYPHENIDYL HCL [Concomitant]

REACTIONS (10)
  - AGGRESSION [None]
  - AGITATION [None]
  - APATHY [None]
  - COGNITIVE DISORDER [None]
  - CONDITION AGGRAVATED [None]
  - ENCEPHALOPATHY [None]
  - MOTOR DYSFUNCTION [None]
  - PARKINSONISM [None]
  - PERSONALITY CHANGE [None]
  - WHEELCHAIR USER [None]
